FAERS Safety Report 5579296-9 (Version None)
Quarter: 2007Q4

REPORT INFORMATION
  Report Type: 
  Country: None (occurrence: None)
  Receive Date: 20071228
  Receipt Date: 20071217
  Transmission Date: 20080405
  Serious: Yes (Other)
  Sender: FDA-Public Use
  Company Number: FABR-1000004

PATIENT
  Sex: Female

DRUGS (1)
  1. FABRAZYME [Suspect]
     Indication: FABRY'S DISEASE
     Dosage: 55 MG, Q2W, INTRAVENOUS
     Route: 042
     Dates: start: 20070629, end: 20070810

REACTIONS (7)
  - ABORTION SPONTANEOUS [None]
  - ASTHMA [None]
  - DRUG EXPOSURE BEFORE PREGNANCY [None]
  - INFUSION RELATED REACTION [None]
  - PAIN IN EXTREMITY [None]
  - PROTEINURIA [None]
  - PYREXIA [None]
